FAERS Safety Report 8536892-4 (Version None)
Quarter: 2012Q3

REPORT INFORMATION
  Report Type: 
  Country: None (occurrence: None)
  Receive Date: 20120725
  Receipt Date: 20120709
  Transmission Date: 20120928
  Serious: Yes (Hospitalization, Other)
  Sender: FDA-Public Use
  Company Number: FR-GENZYME-CLOF-1002230

PATIENT
  Sex: Female
  Weight: 88 kg

DRUGS (3)
  1. CLOFARABINE [Suspect]
     Indication: ACUTE LEUKAEMIA
     Dosage: UNK
     Route: 065
  2. FILGRASTIM [Suspect]
     Indication: PRODUCT USED FOR UNKNOWN INDICATION
     Dosage: UNK
     Route: 065
  3. CYTARABINE [Suspect]
     Indication: ACUTE LEUKAEMIA
     Dosage: UNK
     Route: 065

REACTIONS (8)
  - RENAL FAILURE ACUTE [None]
  - OXYGEN SUPPLEMENTATION [None]
  - SEPSIS [None]
  - ENTEROBACTER INFECTION [None]
  - DIARRHOEA [None]
  - GAMMA-GLUTAMYLTRANSFERASE INCREASED [None]
  - NAUSEA [None]
  - EPILEPSY [None]
